FAERS Safety Report 9100751 (Version 1)
Quarter: 2013Q1

REPORT INFORMATION
  Report Type: Spontaneous
  Country: US (occurrence: US)
  Receive Date: 20130215
  Receipt Date: 20130215
  Transmission Date: 20140127
  Serious: Yes (Other)
  Sender: FDA-Public Use
  Company Number: US-BAYER-2013-017425

PATIENT
  Age: 80 Year
  Sex: Male
  Weight: 80.29 kg

DRUGS (12)
  1. XARELTO [Suspect]
     Indication: CEREBROVASCULAR ACCIDENT PROPHYLAXIS
     Dosage: 20 MG, QD
     Route: 048
     Dates: start: 201212
  2. XARELTO [Interacting]
     Indication: ATRIAL FIBRILLATION
  3. ACETYLSALICYLIC ACID({=100 MG) [Interacting]
     Indication: ANTICOAGULANT THERAPY
     Dosage: 100 MG, QD
     Route: 048
     Dates: start: 2011
  4. NASONEX [Suspect]
     Indication: SEASONAL ALLERGY
     Dosage: 50 ?G, UNK
     Route: 055
  5. NASONEX [Suspect]
     Indication: NASAL CONGESTION
  6. METOPROLOL [Concomitant]
     Indication: BLOOD PRESSURE ABNORMAL
     Dosage: 100 MG, QD
     Route: 048
  7. METOPROLOL [Concomitant]
     Indication: BLOOD PRESSURE ABNORMAL
     Dosage: 25 MG, UNK
     Route: 048
  8. NIASPAN [Concomitant]
     Indication: BLOOD CHOLESTEROL ABNORMAL
     Dosage: 1000 MG, QD
     Route: 048
  9. VITAMIN B12 NOS [Concomitant]
     Indication: VITAMIN B12 DEFICIENCY
     Dosage: 500 MG, QD
     Route: 048
     Dates: start: 201212
  10. SINGULAIR [Concomitant]
     Indication: PRODUCT USED FOR UNKNOWN INDICATION
     Dosage: 10 MG, QD
     Route: 048
     Dates: start: 201212
  11. ALL OTHER THERAPEUTIC PRODUCTS [Concomitant]
     Indication: PRODUCT USED FOR UNKNOWN INDICATION
     Route: 031
  12. VITAMINS NOS [Concomitant]
     Indication: NUTRITIONAL SUPPLEMENTATION
     Route: 065

REACTIONS (8)
  - Mouth haemorrhage [Recovered/Resolved]
  - Epistaxis [Recovered/Resolved]
  - Gingival bleeding [Recovered/Resolved]
  - Thrombosis [Recovered/Resolved]
  - Nasal congestion [Not Recovered/Not Resolved]
  - Dry mouth [Recovered/Resolved]
  - Flatulence [Recovered/Resolved]
  - Condition aggravated [None]
